FAERS Safety Report 10224819 (Version 2)
Quarter: 2014Q2

REPORT INFORMATION
  Report Type: Spontaneous
  Country: US (occurrence: US)
  Receive Date: 20140609
  Receipt Date: 20140609
  Transmission Date: 20141212
  Serious: No
  Sender: FDA-Public Use
  Company Number: US-BAYER-2014-014241

PATIENT
  Age: 73 Year
  Sex: Female

DRUGS (7)
  1. VENTAVIS [Suspect]
     Indication: PULMONARY ARTERIAL HYPERTENSION
     Dosage: UNK
     Route: 055
     Dates: start: 20120316
  2. VENTAVIS [Suspect]
     Indication: PULMONARY ARTERIAL HYPERTENSION
     Dosage: 5 ?G, 6-9 TIMES PER DAY
     Route: 055
     Dates: start: 20120410
  3. VENTAVIS [Suspect]
     Indication: PULMONARY ARTERIAL HYPERTENSION
     Dosage: 5 ?G, 6-9X/D
     Route: 055
  4. MACITENTAN [Suspect]
     Indication: PULMONARY ARTERIAL HYPERTENSION
     Dosage: UNK, UNK
     Route: 048
     Dates: start: 20131216
  5. MACITENTAN [Suspect]
     Indication: PULMONARY ARTERIAL HYPERTENSION
     Dosage: 10 MG, UNK
     Route: 048
     Dates: start: 20131216
  6. ADEMPAS [Suspect]
     Indication: PRODUCT USED FOR UNKNOWN INDICATION
     Dosage: 0.5 MG, TID
     Route: 065
     Dates: start: 20140428, end: 20140429
  7. ADCIRCA [Concomitant]

REACTIONS (6)
  - Feeling abnormal [None]
  - Nausea [None]
  - Nausea [None]
  - Dyspnoea [Unknown]
  - Chest discomfort [Recovered/Resolved]
  - Malaise [Unknown]
